FAERS Safety Report 22056032 (Version 1)
Quarter: 2023Q1

REPORT INFORMATION
  Report Type: Spontaneous
  Country: US (occurrence: US)
  Receive Date: 20230302
  Receipt Date: 20230302
  Transmission Date: 20230418
  Serious: No
  Sender: FDA-Public Use
  Company Number: US-Kaleo, Inc.-2023KL000008

PATIENT
  Age: 11 Year
  Sex: Female

DRUGS (1)
  1. AUVI-Q [Suspect]
     Active Substance: EPINEPHRINE

REACTIONS (2)
  - Device audio issue [Not Recovered/Not Resolved]
  - Device optical issue [Not Recovered/Not Resolved]

NARRATIVE: CASE EVENT DATE: 20230128
